FAERS Safety Report 9276721 (Version 2)
Quarter: 2013Q2

REPORT INFORMATION
  Report Type: Spontaneous
  Country: FR (occurrence: FR)
  Receive Date: 20130507
  Receipt Date: 20130618
  Transmission Date: 20140414
  Serious: Yes (Hospitalization)
  Sender: FDA-Public Use
  Company Number: FR-TEVA-403667USA

PATIENT
  Age: 57 Year
  Sex: Male
  Weight: 66 kg

DRUGS (8)
  1. LEVACT [Suspect]
     Indication: EXTRANODAL MARGINAL ZONE B-CELL LYMPHOMA (MALT TYPE)
     Route: 041
     Dates: start: 20121228
  2. LEVACT [Suspect]
     Route: 041
     Dates: start: 20130117
  3. MABTHERA [Suspect]
     Indication: EXTRANODAL MARGINAL ZONE B-CELL LYMPHOMA (MALT TYPE)
     Route: 041
     Dates: start: 20121228, end: 20130117
  4. MABTHERA [Suspect]
     Indication: CHRONIC LYMPHOCYTIC LEUKAEMIA
  5. BRICANYL [Concomitant]
     Indication: ASTHMA
     Dosage: 2 DOSAGE FORMS DAILY;
     Route: 055
     Dates: start: 200803
  6. ATROVENT [Concomitant]
     Indication: ASTHMA
     Dosage: 2 DOSAGE FORMS DAILY;
     Route: 055
     Dates: start: 20130206, end: 20130216
  7. SERETIDE [Concomitant]
     Indication: ASTHMA
     Dosage: 2 DOSAGE FORMS DAILY;
     Route: 055
     Dates: start: 200803
  8. PULMICORT [Concomitant]
     Indication: ASTHMA
     Dosage: 2 DOSAGE FORMS DAILY;
     Route: 055
     Dates: start: 200803

REACTIONS (1)
  - Eosinophilic pneumonia [Recovered/Resolved]
